FAERS Safety Report 8906364 (Version 1)
Quarter: 2012Q4

REPORT INFORMATION
  Report Type: Spontaneous
  Country: US (occurrence: None)
  Receive Date: 20121109
  Receipt Date: 20121109
  Transmission Date: 20130627
  Serious: Yes (Disabling)
  Sender: FDA-Public Use
  Company Number: None

PATIENT
  Age: 77 Year
  Sex: Male
  Weight: 70.31 kg

DRUGS (2)
  1. XIAFLEX [Suspect]
     Dosage: .01 3 times
     Dates: start: 20120117, end: 20120214
  2. XIAFLEX [Suspect]
     Dates: start: 20120314

REACTIONS (2)
  - Trigger finger [None]
  - Finger deformity [None]
